FAERS Safety Report 7578167-6 (Version None)
Quarter: 2011Q2

REPORT INFORMATION
  Report Type: 
  Country: None (occurrence: None)
  Receive Date: 20110628
  Receipt Date: 20110622
  Transmission Date: 20111010
  Serious: Yes (Death)
  Sender: FDA-Public Use
  Company Number: A0932464A

PATIENT
  Age: 70 Year
  Sex: Male

DRUGS (1)
  1. TYKERB [Suspect]
     Indication: LUNG NEOPLASM MALIGNANT
     Route: 048
     Dates: start: 20110501, end: 20110515

REACTIONS (2)
  - DIARRHOEA [None]
  - LUNG NEOPLASM MALIGNANT [None]
